FAERS Safety Report 9726935 (Version 2)
Quarter: 2013Q4

REPORT INFORMATION
  Report Type: Spontaneous
  Country: JP (occurrence: JP)
  Receive Date: 20131203
  Receipt Date: 20131212
  Transmission Date: 20140711
  Serious: Yes (Hospitalization)
  Sender: FDA-Public Use
  Company Number: JP-B.I. PHARMACEUTICALS,INC./RIDGEFIELD-2013-BI-39701GD

PATIENT
  Age: 83 Year
  Sex: Female

DRUGS (2)
  1. MELOXICAM [Suspect]
     Indication: OSTEOPOROSIS
     Dates: start: 201302, end: 201303
  2. LANSOPRAZOLE [Concomitant]
     Indication: GASTROOESOPHAGEAL REFLUX DISEASE
     Dates: start: 201302

REACTIONS (11)
  - Shock haemorrhagic [Unknown]
  - Large intestinal ulcer [Recovered/Resolved]
  - Diarrhoea [Recovered/Resolved]
  - Abdominal pain [Unknown]
  - Gastrointestinal erosion [Unknown]
  - Melaena [Recovered/Resolved]
  - Diaphragmatic hernia [Unknown]
  - Leukocytosis [Unknown]
  - Pyrexia [Unknown]
  - Enterocolitis [Unknown]
  - Bacterial translocation [Unknown]
